FAERS Safety Report 9698165 (Version 2)
Quarter: 2013Q4

REPORT INFORMATION
  Report Type: Spontaneous
  Country: DE (occurrence: None)
  Receive Date: 20131118
  Receipt Date: 20131127
  Transmission Date: 20140711
  Serious: Yes (Hospitalization)
  Sender: FDA-Public Use
  Company Number: DE-LHC-2013060

PATIENT
  Age: 53 Year
  Sex: Male

DRUGS (1)
  1. CONOXIA [Suspect]
     Indication: CHRONIC OBSTRUCTIVE PULMONARY DISEASE
     Dosage: 2 L/MIN AT REST; 4 L/MIN AT STRESS, INHALATION
     Route: 055

REACTIONS (2)
  - Lung hyperinflation [None]
  - Incorrect dose administered [None]
